FAERS Safety Report 13726979 (Version 9)
Quarter: 2019Q4

REPORT INFORMATION
  Report Type: Spontaneous
  Country: US (occurrence: US)
  Receive Date: 20170706
  Receipt Date: 20191126
  Transmission Date: 20200122
  Serious: Yes (Other)
  Sender: FDA-Public Use
  Company Number: US-PFIZER INC-2017291580

PATIENT
  Age: 71 Year
  Sex: Female
  Weight: 102.4 kg

DRUGS (16)
  1. SOMAVERT [Suspect]
     Active Substance: PEGVISOMANT
     Dosage: 20 MG, DAILY
     Route: 058
  2. SANDOSTATIN LAR DEPOT [Concomitant]
     Active Substance: OCTREOTIDE ACETATE
     Dosage: UNK
  3. NOVOLOG [Concomitant]
     Active Substance: INSULIN ASPART
     Dosage: UNK [100/ML CARTRIDGE]
  4. VITAMIN D3 [Concomitant]
     Active Substance: CHOLECALCIFEROL
     Dosage: 1000 IU, UNK
  5. TERAZOSIN [Concomitant]
     Active Substance: TERAZOSIN HYDROCHLORIDE
     Dosage: 10 MG, UNK
  6. SOMAVERT [Suspect]
     Active Substance: PEGVISOMANT
     Indication: PRECOCIOUS PUBERTY
     Dosage: 20 MG, DAILY
     Route: 058
     Dates: end: 20180518
  7. SOMAVERT [Suspect]
     Active Substance: PEGVISOMANT
     Dosage: UNK
  8. NOVOLOG [Concomitant]
     Active Substance: INSULIN ASPART
     Indication: DIABETES MELLITUS
     Dosage: 20 IU, 3X/DAY
  9. SOMAVERT [Suspect]
     Active Substance: PEGVISOMANT
     Indication: PITUITARY ENLARGEMENT
     Dosage: 20 MG, DAILY
     Route: 058
  10. SOMAVERT [Suspect]
     Active Substance: PEGVISOMANT
     Dosage: 20 MG, DAILY
     Route: 058
  11. LANTUS [Concomitant]
     Active Substance: INSULIN GLARGINE
     Dosage: UNK
  12. SOMAVERT [Suspect]
     Active Substance: PEGVISOMANT
     Indication: ACROMEGALY
     Dosage: 20 MG, DAILY
     Route: 058
     Dates: start: 2013
  13. LANTUS [Concomitant]
     Active Substance: INSULIN GLARGINE
     Indication: DIABETES MELLITUS
     Dosage: 40 IU, 2X/DAY
  14. INSULIN [Concomitant]
     Active Substance: INSULIN NOS
     Dosage: UNK
  15. AMLODIPINE BESYLATE. [Concomitant]
     Active Substance: AMLODIPINE BESYLATE
     Dosage: 10 MG, UNK
  16. LOSARTAN HYDROCHLOROTHIAZIDE ACTAVIS [Concomitant]
     Active Substance: HYDROCHLOROTHIAZIDE\LOSARTAN POTASSIUM
     Dosage: UNK (HYDROCHLOROTHIAZIDE12.5 MG/ LOSARTAN POTASSIUM 100MG)

REACTIONS (34)
  - Disease recurrence [Unknown]
  - Blood glucose increased [Unknown]
  - Blood cholesterol increased [Unknown]
  - Glycosylated haemoglobin increased [Unknown]
  - Balance disorder [Unknown]
  - Oedema [Unknown]
  - Libido decreased [Unknown]
  - Visual impairment [Unknown]
  - Gait disturbance [Unknown]
  - Injection site induration [Unknown]
  - Hyperphagia [Unknown]
  - Urine albumin/creatinine ratio increased [Unknown]
  - Pruritus [Unknown]
  - Pain [Unknown]
  - Appetite disorder [Unknown]
  - Insulin-like growth factor increased [Unknown]
  - Rash papular [Unknown]
  - Polyuria [Unknown]
  - Headache [Unknown]
  - Blood urea nitrogen/creatinine ratio increased [Unknown]
  - Rosacea [Unknown]
  - Neoplasm [Recovering/Resolving]
  - Muscle spasms [Unknown]
  - Dizziness [Unknown]
  - Alanine aminotransferase increased [Unknown]
  - Dyskinesia [Unknown]
  - Fatigue [Unknown]
  - Thirst [Unknown]
  - Night sweats [Unknown]
  - Palpitations [Unknown]
  - Dry skin [Unknown]
  - Dysphagia [Unknown]
  - Enuresis [Unknown]
  - Bone density increased [Unknown]

NARRATIVE: CASE EVENT DATE: 20170822
